FAERS Safety Report 5214863-3 (Version None)
Quarter: 2006Q4

REPORT INFORMATION
  Report Type: 
  Country: None (occurrence: None)
  Receive Date: 20061107
  Receipt Date: 20060814
  Transmission Date: 20070319
  Serious: No
  Sender: FDA-Public Use
  Company Number: 200614059BWH

PATIENT
  Age: 73 Year
  Sex: Male

DRUGS (2)
  1. LEVITRA [Suspect]
     Indication: ERECTILE DYSFUNCTION
     Dosage: 20 MG, OW, ORAL
     Route: 048
  2. CIALIS [Concomitant]

REACTIONS (4)
  - DIARRHOEA [None]
  - DYSURIA [None]
  - NASAL CONGESTION [None]
  - NAUSEA [None]
